FAERS Safety Report 5937604-0 (Version None)
Quarter: 2008Q4

REPORT INFORMATION
  Report Type: 
  Country: None (occurrence: None)
  Receive Date: 20081031
  Receipt Date: 20081027
  Transmission Date: 20090506
  Serious: Yes (Disabling, Other)
  Sender: FDA-Public Use
  Company Number: US-ELI_LILLY_AND_COMPANY-US200807001442

PATIENT
  Sex: Male

DRUGS (8)
  1. HUMALOG [Suspect]
     Dosage: UNK, UNK
     Dates: start: 20010101, end: 20070101
  2. HUMALOG [Suspect]
     Indication: DIABETES MELLITUS
     Dosage: UNK, UNK
     Dates: start: 20070101
  3. HUMALOG [Suspect]
  4. SYNTHROID [Concomitant]
  5. LEVAQUIN [Concomitant]
  6. LASIX [Concomitant]
  7. PLAVIX [Concomitant]
  8. HYDROCHLORZIDE [Concomitant]

REACTIONS (16)
  - ATAXIA [None]
  - BLOOD GLUCOSE INCREASED [None]
  - DISABILITY [None]
  - HYPOTHYROIDISM [None]
  - INTERVERTEBRAL DISC DEGENERATION [None]
  - LETHARGY [None]
  - MUSCLE ATROPHY [None]
  - NARCOLEPSY [None]
  - OEDEMA PERIPHERAL [None]
  - PHLEBITIS [None]
  - PICKWICKIAN SYNDROME [None]
  - RIGHT VENTRICULAR FAILURE [None]
  - SPINAL OSTEOARTHRITIS [None]
  - SYNOVITIS [None]
  - VENOUS INSUFFICIENCY [None]
  - WEIGHT DECREASED [None]
